FAERS Safety Report 20432396 (Version 5)
Quarter: 2022Q2

REPORT INFORMATION
  Report Type: Spontaneous
  Country: FR (occurrence: FR)
  Receive Date: 20220204
  Receipt Date: 20220425
  Transmission Date: 20220721
  Serious: Yes (Hospitalization)
  Sender: FDA-Public Use
  Company Number: FR-GILEAD-2022-0568440

PATIENT
  Sex: Male

DRUGS (1)
  1. AXICABTAGENE CILOLEUCEL [Suspect]
     Active Substance: AXICABTAGENE CILOLEUCEL
     Indication: Diffuse large B-cell lymphoma
     Dosage: UNK
     Route: 042
     Dates: start: 20220118, end: 20220118

REACTIONS (6)
  - Nervous system disorder [Recovered/Resolved]
  - Nervous system disorder [Unknown]
  - Tremor [Unknown]
  - Motor dysfunction [Unknown]
  - Dysgraphia [Unknown]
  - Mood altered [Unknown]

NARRATIVE: CASE EVENT DATE: 20220125
